FAERS Safety Report 17669447 (Version 1)
Quarter: 2020Q2

REPORT INFORMATION
  Report Type: Spontaneous
  Country: US (occurrence: US)
  Receive Date: 20200415
  Receipt Date: 20200415
  Transmission Date: 20200713
  Serious: No
  Sender: FDA-Public Use
  Company Number: US-MYLANLABS-2020M1035114

PATIENT
  Age: 47 Year
  Sex: Male

DRUGS (2)
  1. BUSPIRONE HYDROCHLORIDE TABLETS USP [Suspect]
     Active Substance: BUSPIRONE HYDROCHLORIDE
     Indication: ANXIETY
     Dosage: 7.5 MILLIGRAM, BID
     Route: 048
     Dates: start: 20200304, end: 20200307
  2. BUSPIRONE HYDROCHLORIDE TABLETS USP [Suspect]
     Active Substance: BUSPIRONE HYDROCHLORIDE
     Dosage: 7.5 MILLIGRAM, BID
     Route: 048

REACTIONS (5)
  - Vertigo [Recovered/Resolved]
  - Faeces soft [Recovered/Resolved]
  - Dizziness [Recovered/Resolved]
  - Neck pain [Recovered/Resolved]
  - Nausea [Recovered/Resolved]

NARRATIVE: CASE EVENT DATE: 20200305
